FAERS Safety Report 9274558 (Version 1)
Quarter: 2013Q2

REPORT INFORMATION
  Report Type: Spontaneous
  Country: US (occurrence: US)
  Receive Date: 20130507
  Receipt Date: 20130507
  Transmission Date: 20140414
  Serious: Yes (Other)
  Sender: FDA-Public Use
  Company Number: US-AMGEN-USASP2013030267

PATIENT
  Age: 58 Year
  Sex: Female

DRUGS (5)
  1. PROLIA [Suspect]
     Indication: OSTEOPOROSIS POSTMENOPAUSAL
     Dosage: UNK
     Dates: start: 201210
  2. EFFEXOR XR [Concomitant]
     Dosage: 150 MG, UNK
  3. CALCIUM [Concomitant]
     Dosage: UNK
  4. TYLENOL                            /00020001/ [Concomitant]
  5. VITAMINS                           /00067501/ [Concomitant]

REACTIONS (12)
  - Spinal fusion surgery [Unknown]
  - Rash pruritic [Not Recovered/Not Resolved]
  - Rash erythematous [Not Recovered/Not Resolved]
  - Generalised erythema [Not Recovered/Not Resolved]
  - Macule [Not Recovered/Not Resolved]
  - Lip swelling [Not Recovered/Not Resolved]
  - Skin reaction [Not Recovered/Not Resolved]
  - Rash macular [Not Recovered/Not Resolved]
  - Inflammation [Not Recovered/Not Resolved]
  - Chemical injury [Unknown]
  - Pruritus [Recovered/Resolved]
  - Erythema [Not Recovered/Not Resolved]
